FAERS Safety Report 4389228-7 (Version None)
Quarter: 2004Q2

REPORT INFORMATION
  Report Type: 
  Country: None (occurrence: None)
  Receive Date: 20040628
  Receipt Date: 20040615
  Transmission Date: 20050107
  Serious: Yes (Other)
  Sender: FDA-Public Use
  Company Number: 2004219107CA

PATIENT
  Age: 14 Year
  Sex: Female
  Weight: 30.5 kg

DRUGS (1)
  1. GENOTROPIN [Suspect]
     Indication: GROWTH HORMONE DEFICIENCY
     Dosage: 0.03 MG/KG, SIX DAYS A WEEK, SUBCUTANEOUS
     Route: 058

REACTIONS (4)
  - B-CELL LYMPHOMA [None]
  - CENTRAL NERVOUS SYSTEM LYMPHOMA [None]
  - DIABETES INSIPIDUS [None]
  - POST PROCEDURAL COMPLICATION [None]
